FAERS Safety Report 7144815-8 (Version None)
Quarter: 2010Q4

REPORT INFORMATION
  Report Type: 
  Country: None (occurrence: None)
  Receive Date: 20101208
  Receipt Date: 20101130
  Transmission Date: 20110411
  Serious: Yes (Other)
  Sender: FDA-Public Use
  Company Number: US-ELI_LILLY_AND_COMPANY-US201012000348

PATIENT
  Sex: Male

DRUGS (3)
  1. HUMULIN N [Suspect]
     Indication: DIABETES MELLITUS
     Dosage: 15 U, EACH EVENING
     Dates: start: 20101113
  2. MULTI-VITAMINS [Concomitant]
  3. NOVOLIN N [Concomitant]
     Indication: DIABETES MELLITUS
     Dates: end: 20101112

REACTIONS (3)
  - BLOOD GLUCOSE INCREASED [None]
  - HYPOGLYCAEMIC UNCONSCIOUSNESS [None]
  - THERAPEUTIC RESPONSE INCREASED [None]
